FAERS Safety Report 9695764 (Version 2)
Quarter: 2014Q3

REPORT INFORMATION
  Report Type: Spontaneous
  Country: US (occurrence: US)
  Receive Date: 20131119
  Receipt Date: 20140812
  Transmission Date: 20150326
  Serious: Yes (Life-Threatening, Hospitalization, Other)
  Sender: FDA-Public Use
  Company Number: US-B.I. PHARMACEUTICALS,INC./RIDGEFIELD-2013-BI-37005BP

PATIENT
  Age: 73 Year
  Sex: Female
  Weight: 60.33 kg

DRUGS (23)
  1. SPIRIVA [Concomitant]
     Active Substance: TIOTROPIUM BROMIDE MONOHYDRATE
     Dosage: 18 MCG
     Route: 065
  2. ZANAFLEX [Concomitant]
     Active Substance: TIZANIDINE HYDROCHLORIDE
     Dosage: 12 MG
     Route: 048
  3. POTASSIUM CHLORIDE. [Concomitant]
     Active Substance: POTASSIUM CHLORIDE
     Dosage: 10 MEQ
     Route: 048
  4. AMBIEN [Concomitant]
     Active Substance: ZOLPIDEM TARTRATE
     Route: 048
  5. AMITIZA [Concomitant]
     Active Substance: LUBIPROSTONE
     Dosage: 48 MCG
     Route: 048
  6. LISINOPRIL. [Concomitant]
     Active Substance: LISINOPRIL
     Dosage: 5 MG
     Route: 048
  7. SIMVASTATIN. [Concomitant]
     Active Substance: SIMVASTATIN
     Dosage: 40 MG
     Route: 048
  8. CYANOCOBALAMIN. [Concomitant]
     Active Substance: CYANOCOBALAMIN
     Route: 048
  9. MORPHINE [Concomitant]
     Active Substance: MORPHINE
     Dosage: 45 MG
     Route: 048
  10. NITROSTAT [Concomitant]
     Active Substance: NITROGLYCERIN
     Route: 060
  11. PEPCID [Concomitant]
     Active Substance: FAMOTIDINE
     Dosage: 40 MG
     Route: 048
  12. GABAPENTIN. [Concomitant]
     Active Substance: GABAPENTIN
     Dosage: 200 MG
     Route: 048
  13. FOLIC ACID. [Concomitant]
     Active Substance: FOLIC ACID
     Dosage: 1 MG
     Route: 048
  14. KLONOPIN [Concomitant]
     Active Substance: CLONAZEPAM
     Dosage: 4 MG
     Route: 048
  15. METOPROLOL TARTRATE. [Concomitant]
     Active Substance: METOPROLOL TARTRATE
     Route: 048
  16. REQUIP [Concomitant]
     Active Substance: ROPINIROLE HYDROCHLORIDE
     Dosage: 1.5 MG
     Route: 048
  17. LEVOXYL [Concomitant]
     Active Substance: LEVOTHYROXINE SODIUM
     Dosage: 75 MCG
     Route: 048
  18. ANTIVERT [Concomitant]
     Active Substance: MECLIZINE HYDROCHLORIDE
     Route: 048
  19. PRADAXA [Suspect]
     Active Substance: DABIGATRAN ETEXILATE MESYLATE
     Indication: ATRIAL FIBRILLATION
     Dosage: 300 MG
     Route: 048
     Dates: start: 20110219, end: 20121226
  20. RANEXA [Concomitant]
     Active Substance: RANOLAZINE
     Dosage: 1000 MG
     Route: 048
  21. ALBUTEROL. [Concomitant]
     Active Substance: ALBUTEROL
     Dosage: 90 MCG
     Route: 055
     Dates: start: 2010, end: 2012
  22. PHENERGAN [Concomitant]
     Active Substance: PROMETHAZINE HYDROCHLORIDE
     Dosage: 75 MG
     Route: 048
  23. LASIX [Concomitant]
     Active Substance: FUROSEMIDE
     Route: 048

REACTIONS (8)
  - Haemorrhagic anaemia [Unknown]
  - Renal failure acute [Unknown]
  - Hypovolaemic shock [Unknown]
  - Anaemia [Recovered/Resolved]
  - Colitis [Unknown]
  - Haematochezia [Unknown]
  - Gastrointestinal haemorrhage [Recovered/Resolved]
  - Rectal haemorrhage [Unknown]

NARRATIVE: CASE EVENT DATE: 201103
